FAERS Safety Report 9686189 (Version 1)
Quarter: 2013Q4

REPORT INFORMATION
  Report Type: Spontaneous
  Country: FR (occurrence: FR)
  Receive Date: 20131113
  Receipt Date: 20131113
  Transmission Date: 20140711
  Serious: Yes (Hospitalization)
  Sender: FDA-Public Use
  Company Number: FR-BAYER-2013-135035

PATIENT
  Age: 28 Year
  Sex: Female

DRUGS (4)
  1. QLAIRA [Suspect]
     Dosage: UNK
     Route: 048
     Dates: start: 201201, end: 201301
  2. ADEPAL [Suspect]
     Dosage: UNK
     Route: 048
     Dates: end: 201101
  3. DAILY [Suspect]
     Dosage: UNK
     Route: 048
     Dates: start: 201101, end: 201201
  4. TRINORDIOL [Suspect]
     Dosage: UNK
     Route: 048
     Dates: start: 201301, end: 201306

REACTIONS (1)
  - Benign hepatic neoplasm [Recovering/Resolving]
